FAERS Safety Report 7524645-5 (Version None)
Quarter: 2011Q2

REPORT INFORMATION
  Report Type: 
  Country: None (occurrence: None)
  Receive Date: 20110601
  Receipt Date: 20110601
  Transmission Date: 20111010
  Serious: Yes (Life-Threatening)
  Sender: FDA-Public Use
  Company Number: None

PATIENT
  Age: 61 Year
  Sex: Female
  Weight: 77.2022 kg

DRUGS (28)
  1. DIOVAN [Concomitant]
  2. METFORMIN HCL [Concomitant]
  3. ABRAXANE [Suspect]
     Indication: NON-SMALL CELL LUNG CANCER
     Dosage: 100 MG D1, 8 + 15
     Dates: start: 20090526, end: 20090814
  4. DIFLUCAN [Concomitant]
  5. PROPIONATE [Concomitant]
  6. METOPROLOL TARTRATE [Concomitant]
  7. NEURONTIN [Concomitant]
  8. OMEPRAZOLE [Concomitant]
  9. SPIRIVA [Concomitant]
  10. KLONOPIN [Concomitant]
  11. UNASYN [Concomitant]
  12. CELEXA [Concomitant]
  13. LORATADINE [Concomitant]
  14. PERCOCET [Concomitant]
  15. AZITHROMYCIN [Concomitant]
  16. FLUTICASONE PROPIONATE [Concomitant]
  17. HYDROCHLOROTHIAZIDE [Concomitant]
  18. LANCETS [Concomitant]
  19. NICOTINE PATCH [Concomitant]
  20. PROAIR (ALBUTEROL INHALER HFA) [Concomitant]
  21. SIMVASTATIN [Concomitant]
  22. CARBOPLATIN [Suspect]
     Indication: NON-SMALL CELL LUNG CANCER
     Dosage: AUC 6 Q21D
     Dates: start: 20090526, end: 20090803
  23. AVASTIN [Suspect]
     Indication: NON-SMALL CELL LUNG CANCER
     Dosage: 15MG/M2 D-14 + D1 Q21 D
     Dates: start: 20090511, end: 20110502
  24. ALBUTEROL SULFATE AUTOHALER [Concomitant]
  25. HYDROCHLOROTHIAZIDE [Concomitant]
  26. LANCETS [Concomitant]
  27. ROBITUSSIN AC [Concomitant]
  28. ZYPREXA [Concomitant]

REACTIONS (3)
  - PULMONARY EMBOLISM [None]
  - LUNG INFECTION [None]
  - HYPOXIA [None]
